FAERS Safety Report 6220184-2 (Version None)
Quarter: 2009Q2

REPORT INFORMATION
  Report Type: 
  Country: None (occurrence: None)
  Receive Date: 20090605
  Receipt Date: 20090525
  Transmission Date: 20091009
  Serious: Yes (Hospitalization)
  Sender: FDA-Public Use
  Company Number: 230068K09IRL

PATIENT
  Sex: Male

DRUGS (2)
  1. REBIF [Suspect]
     Dosage: 44
     Dates: start: 20030328, end: 20060616
  2. REBIF [Suspect]
     Dosage: 44
     Dates: start: 20061227

REACTIONS (1)
  - CONVULSION [None]
